FAERS Safety Report 5988531-4 (Version None)
Quarter: 2008Q4

REPORT INFORMATION
  Report Type: 
  Country: None (occurrence: None)
  Receive Date: 20081210
  Receipt Date: 20080609
  Transmission Date: 20090506
  Serious: No
  Sender: FDA-Public Use
  Company Number: US-BAYER-200810962BCC

PATIENT
  Age: 48 Year
  Sex: Female
  Weight: 64 kg

DRUGS (5)
  1. ALEVE (CAPLET) [Suspect]
     Indication: ANALGESIA
     Dosage: TOTAL DAILY DOSE: 220 MG  UNIT DOSE: 220 MG
     Route: 048
     Dates: start: 20071201, end: 20071201
  2. LAMICTAL [Concomitant]
  3. CYMBALTA [Concomitant]
  4. TRAZODONE HCL [Concomitant]
  5. SYNTHROID [Concomitant]

REACTIONS (1)
  - BLOOD POTASSIUM INCREASED [None]
